FAERS Safety Report 15853994 (Version 1)
Quarter: 2019Q1

REPORT INFORMATION
  Report Type: Spontaneous
  Country: US (occurrence: US)
  Receive Date: 20190121
  Receipt Date: 20190121
  Transmission Date: 20190417
  Serious: Yes (Other)
  Sender: FDA-Public Use
  Company Number: None

PATIENT
  Age: 54 Year
  Sex: Female
  Weight: 95.45 kg

DRUGS (13)
  1. NOVOLOG INSULIN 3 TIMES DAILY [Concomitant]
  2. VITAMIN D 2000 UNITS DAILY [Concomitant]
  3. HYDROCHLOROTHIAZIDE 12.5MG DAILY [Concomitant]
  4. FLUOXETINE 40MG DAILY [Concomitant]
  5. CETIRIZINE 10MG DAILY [Concomitant]
  6. METFORMIN 1000MG TWICE DAILY [Concomitant]
  7. ATORVASTATIN 20MG DAILY [Concomitant]
  8. FLONASE [Concomitant]
     Active Substance: FLUTICASONE PROPIONATE
  9. LANTUS 82 UNITS AT BEDTIME [Concomitant]
  10. LOSARTAN 100MG DAILY [Concomitant]
  11. BYDUREON [Suspect]
     Active Substance: EXENATIDE
     Indication: TYPE 2 DIABETES MELLITUS
     Dosage: ?          OTHER FREQUENCY:ONCE WEEKLY;?
     Route: 058
     Dates: start: 20181022, end: 20181119
  12. BUPROPION XL 300MG DAILY [Concomitant]
  13. ASPIRIN 81MG DAILY [Concomitant]
     Active Substance: ASPIRIN

REACTIONS (3)
  - Pruritus [None]
  - Skin hyperpigmentation [None]
  - Injection site nodule [None]

NARRATIVE: CASE EVENT DATE: 20181124
